FAERS Safety Report 6056802-1 (Version None)
Quarter: 2009Q1

REPORT INFORMATION
  Report Type: 
  Country: None (occurrence: None)
  Receive Date: 20090126
  Receipt Date: 20090126
  Transmission Date: 20090719
  Serious: Yes (Death)
  Sender: FDA-Public Use
  Company Number: None

PATIENT
  Age: 65 Year
  Sex: Male
  Weight: 102.0593 kg

DRUGS (4)
  1. LYRICA [Suspect]
     Indication: CARPAL TUNNEL SYNDROME
     Dosage: 1 2X PO
     Route: 048
     Dates: start: 20070707, end: 20080101
  2. LYRICA [Suspect]
     Indication: NEUROPATHY PERIPHERAL
     Dosage: 1 2X PO
     Route: 048
     Dates: start: 20070707, end: 20080101
  3. LYRICA [Suspect]
     Indication: CARPAL TUNNEL SYNDROME
     Dosage: 1 2X PO
     Route: 048
     Dates: start: 20080101, end: 20080909
  4. LYRICA [Suspect]
     Indication: NEUROPATHY PERIPHERAL
     Dosage: 1 2X PO
     Route: 048
     Dates: start: 20080101, end: 20080909

REACTIONS (1)
  - COMPLETED SUICIDE [None]
